FAERS Safety Report 4699425-9 (Version None)
Quarter: 2005Q2

REPORT INFORMATION
  Report Type: 
  Country: None (occurrence: None)
  Receive Date: 20050622
  Receipt Date: 20050606
  Transmission Date: 20051028
  Serious: Yes (Other)
  Sender: FDA-Public Use
  Company Number: ACO_0170_2005

PATIENT

DRUGS (2)
  1. TERNELIN [Suspect]
     Dosage: 20 DF ONCE PO
     Route: 048
  2. ALCOHOL [Suspect]

REACTIONS (4)
  - BLOOD PRESSURE SYSTOLIC DECREASED [None]
  - INTENTIONAL MISUSE [None]
  - OVERDOSE [None]
  - SOMNOLENCE [None]
